FAERS Safety Report 10714019 (Version 1)
Quarter: 2015Q1

REPORT INFORMATION
  Report Type: Report from Study
  Country: BR (occurrence: BR)
  Receive Date: 20150115
  Receipt Date: 20150115
  Transmission Date: 20150721
  Serious: Yes (Hospitalization, Other)
  Sender: FDA-Public Use
  Company Number: BR-ABBVIE-15K-020-1332144-00

PATIENT
  Sex: Female
  Weight: 66 kg

DRUGS (8)
  1. BENZETACIL [Suspect]
     Active Substance: PENICILLIN G BENZATHINE
     Indication: LOCALISED INFECTION
     Route: 065
  2. METHOTREXATE [Suspect]
     Active Substance: METHOTREXATE
     Route: 065
     Dates: start: 201412
  3. METICORTEN [Concomitant]
     Active Substance: PREDNISONE
  4. METHOTREXATE [Suspect]
     Active Substance: METHOTREXATE
     Indication: RHEUMATOID ARTHRITIS
     Route: 065
  5. METICORTEN [Concomitant]
     Active Substance: PREDNISONE
     Indication: PRODUCT USED FOR UNKNOWN INDICATION
  6. VANCOMYCIN [Suspect]
     Active Substance: VANCOMYCIN
     Indication: LOCALISED INFECTION
     Route: 065
  7. ARAVA [Suspect]
     Active Substance: LEFLUNOMIDE
     Indication: RHEUMATOID ARTHRITIS
     Route: 065
     Dates: end: 2014
  8. HUMIRA [Suspect]
     Active Substance: ADALIMUMAB
     Indication: RHEUMATOID ARTHRITIS
     Route: 058
     Dates: start: 201401, end: 201403

REACTIONS (17)
  - Osteomyelitis [Unknown]
  - Sciatica [Unknown]
  - Pain [Unknown]
  - Arthropod bite [Unknown]
  - Osteonecrosis [Unknown]
  - Inflammation [Not Recovered/Not Resolved]
  - Drug hypersensitivity [Recovered/Resolved]
  - Gait disturbance [Unknown]
  - Arthritis bacterial [Unknown]
  - Pain in extremity [Unknown]
  - Pruritus allergic [Recovered/Resolved]
  - Drug hypersensitivity [Recovered/Resolved]
  - Infection [Not Recovered/Not Resolved]
  - Drug-induced liver injury [Unknown]
  - Rheumatoid arthritis [Unknown]
  - Bacterial infection [Recovered/Resolved]
  - Skin exfoliation [Recovered/Resolved]

NARRATIVE: CASE EVENT DATE: 2014
